FAERS Safety Report 16233032 (Version 5)
Quarter: 2019Q3

REPORT INFORMATION
  Report Type: Report from Study
  Country: JP (occurrence: JP)
  Receive Date: 20190424
  Receipt Date: 20190820
  Transmission Date: 20191004
  Serious: Yes (Death, Life-Threatening, Hospitalization, Disabling, Other)
  Sender: FDA-Public Use
  Company Number: JP-BRISTOL-MYERS SQUIBB COMPANY-BMS-2019-039937

PATIENT
  Age: 77 Year
  Sex: Male
  Weight: 57.9 kg

DRUGS (2)
  1. IPILIMUMAB [Suspect]
     Active Substance: IPILIMUMAB
     Indication: MALIGNANT MELANOMA
     Dosage: 3 MILLIGRAM/KILOGRAM, Q3WK
     Route: 041
     Dates: start: 20181204
  2. NIVOLUMAB [Suspect]
     Active Substance: NIVOLUMAB
     Indication: MALIGNANT MELANOMA
     Dosage: 80 MILLIGRAM, Q3WK
     Route: 041
     Dates: start: 20181204, end: 20190315

REACTIONS (4)
  - Hepatic enzyme increased [Recovering/Resolving]
  - Cardiac failure congestive [Fatal]
  - Acute myocardial infarction [Unknown]
  - Renal failure [Unknown]

NARRATIVE: CASE EVENT DATE: 20190111
